FAERS Safety Report 4499426-X (Version None)
Quarter: 2004Q4

REPORT INFORMATION
  Report Type: 
  Country: None (occurrence: None)
  Receive Date: 20041111
  Receipt Date: 20041105
  Transmission Date: 20050328
  Serious: Yes (Life-Threatening, Hospitalization, Disabling)
  Sender: FDA-Public Use
  Company Number: US-MERCK-0411USA01034

PATIENT
  Age: 47 Year
  Sex: Female

DRUGS (3)
  1. VIOXX [Suspect]
     Indication: BACK PAIN
     Route: 048
  2. FLEXERIL [Concomitant]
     Route: 065
  3. NEURONTIN [Concomitant]
     Route: 065

REACTIONS (6)
  - BLINDNESS [None]
  - BLOOD PRESSURE INCREASED [None]
  - CEREBRAL HAEMORRHAGE [None]
  - CEREBROVASCULAR ACCIDENT [None]
  - MYOCARDIAL INFARCTION [None]
  - PARALYSIS [None]
